FAERS Safety Report 6688181-0 (Version None)
Quarter: 2010Q2

REPORT INFORMATION
  Report Type: 
  Country: None (occurrence: None)
  Receive Date: 20100420
  Receipt Date: 20100409
  Transmission Date: 20101027
  Serious: Yes (Other)
  Sender: FDA-Public Use
  Company Number: PL-PFIZER INC-2010045719

PATIENT
  Age: 30 Year
  Sex: Male

DRUGS (1)
  1. ZETAMAX [Suspect]
     Dosage: UNK

REACTIONS (3)
  - BLOOD PRESSURE DECREASED [None]
  - COLD SWEAT [None]
  - PALLOR [None]
